FAERS Safety Report 8340350 (Version 2)
Quarter: 2012Q4

REPORT INFORMATION
  Report Type: Report from Study
  Country: FR (occurrence: FR)
  Receive Date: 20120117
  Receipt Date: 20121226
  Transmission Date: 20130627
  Serious: Yes (Hospitalization)
  Sender: FDA-Public Use
  Company Number: PHHO2011FR021521

PATIENT

DRUGS (2)
  1. EVEROLIMUS [Suspect]
     Indication: ENDOMETRIAL CANCER
     Dosage: 10 mg, QD
     Route: 048
     Dates: start: 20090423, end: 20111222
  2. EVEROLIMUS [Suspect]
     Dosage: 5 mg, QD
     Route: 048
     Dates: start: 20120110

REACTIONS (1)
  - Myocardial ischaemia [Recovered/Resolved with Sequelae]
